FAERS Safety Report 9947775 (Version 1)
Quarter: 2014Q1

REPORT INFORMATION
  Report Type: Spontaneous
  Country: US (occurrence: None)
  Receive Date: 20140122
  Receipt Date: 20140122
  Transmission Date: 20141002
  Serious: No
  Sender: FDA-Public Use
  Company Number: AP356-00144-SPO-US

PATIENT
  Age: 50 Year
  Sex: Female

DRUGS (10)
  1. BELVIQ (LORCASERIN HYDROCHLORIDE) [Suspect]
     Indication: WEIGHT CONTROL
     Route: 048
     Dates: start: 20130926
  2. VITAMIN D (ERGOCALCIFEROL) [Concomitant]
  3. DHEA (PRASTERONE) [Concomitant]
  4. ALLERGY MEDICATION (ALLERGY MEDICATION) [Concomitant]
  5. PROGESTERONE (PROGRESTERONE) [Concomitant]
  6. TESTOSTERONE (TESTOSTERONE) [Concomitant]
  7. FISH OIL (FISH OIL) [Concomitant]
  8. BABY ASPIRIN (ACETYLSALICYLIC ACID) [Concomitant]
  9. MULTI-VITAMINS (MVI-ADULT) [Concomitant]
  10. VITAMIN C (ASCORBIC ACID) (VITAMIN C), PLAIN) [Concomitant]

REACTIONS (2)
  - Breast enlargement [None]
  - Headache [None]
